FAERS Safety Report 7704764-0 (Version None)
Quarter: 2011Q3

REPORT INFORMATION
  Report Type: 
  Country: None (occurrence: None)
  Receive Date: 20110823
  Receipt Date: 20110818
  Transmission Date: 20111222
  Serious: Yes (Disabling, Other)
  Sender: FDA-Public Use
  Company Number: US-BAYER-2011-038047

PATIENT
  Sex: Female

DRUGS (4)
  1. CIPROFLOXACIN [Suspect]
     Indication: URINARY TRACT INFECTION
     Dosage: UNK
     Route: 048
  2. VICODIN [Concomitant]
  3. NATURAL SUPPLEMENTS [Concomitant]
  4. TRAMADOL HCL [Concomitant]

REACTIONS (15)
  - BURNING SENSATION [None]
  - VISION BLURRED [None]
  - GAIT DISTURBANCE [None]
  - MUSCLE TIGHTNESS [None]
  - MYALGIA [None]
  - ASTHENIA [None]
  - MALAISE [None]
  - TENDONITIS [None]
  - ROTATOR CUFF SYNDROME [None]
  - ARTHRALGIA [None]
  - MUSCULOSKELETAL DISCOMFORT [None]
  - FATIGUE [None]
  - MUSCULOSKELETAL PAIN [None]
  - APHAGIA [None]
  - DIZZINESS [None]
